FAERS Safety Report 5457062-2 (Version None)
Quarter: 2007Q3

REPORT INFORMATION
  Report Type: 
  Country: None (occurrence: None)
  Receive Date: 20070918
  Receipt Date: 20070531
  Transmission Date: 20080115
  Serious: Yes (Other)
  Sender: FDA-Public Use
  Company Number: US-ASTRAZENECA-2006UW27895

PATIENT
  Age: 14191 Day
  Sex: Female
  Weight: 81.8 kg

DRUGS (9)
  1. SEROQUEL [Suspect]
     Indication: BIPOLAR DISORDER
     Route: 048
     Dates: start: 20040101, end: 20050101
  2. SEROQUEL [Suspect]
     Indication: DEPRESSION
     Route: 048
     Dates: start: 20040101, end: 20050101
  3. SEROQUEL [Suspect]
     Indication: INSOMNIA
     Route: 048
     Dates: start: 20040101, end: 20050101
  4. ABILIFY [Concomitant]
  5. ZYPREXA [Concomitant]
  6. FLUOXETINE [Concomitant]
  7. TRAZODONE HCL [Concomitant]
  8. LOVASTATIN [Concomitant]
  9. PRILOSEC [Concomitant]

REACTIONS (3)
  - DIABETES MELLITUS [None]
  - PANCREATITIS [None]
  - RENAL FAILURE [None]
